FAERS Safety Report 24715218 (Version 1)
Quarter: 2024Q4

REPORT INFORMATION
  Report Type: Spontaneous
  Country: CN (occurrence: CN)
  Receive Date: 20241210
  Receipt Date: 20241210
  Transmission Date: 20250114
  Serious: Yes (Other)
  Sender: Jiangsu Hengrui Pharmaceuticals
  Company Number: CN-JIANGSU HENGRUI PHARMACEUTICALS CO., LTD.-H2024240935

PATIENT
  Age: 70 Year
  Weight: 54 kg

DRUGS (2)
  1. OXALIPLATIN [Suspect]
     Active Substance: OXALIPLATIN
     Indication: Gastric cancer
     Dosage: 200 MG
  2. TRASTUZUMAB [Suspect]
     Active Substance: TRASTUZUMAB
     Indication: Gastric cancer
     Dosage: 440 MG

REACTIONS (1)
  - Respiratory depression [Recovering/Resolving]
